FAERS Safety Report 9320650 (Version 1)
Quarter: 2013Q2

REPORT INFORMATION
  Report Type: Spontaneous
  Country: US (occurrence: US)
  Receive Date: 20130531
  Receipt Date: 20130531
  Transmission Date: 20140414
  Serious: Yes (Hospitalization)
  Sender: FDA-Public Use
  Company Number: US-BIOGENIDEC-2013BI047395

PATIENT
  Age: 66 Year
  Sex: Female

DRUGS (1)
  1. AVONEX [Suspect]
     Indication: MULTIPLE SCLEROSIS
     Route: 030
     Dates: start: 20010205

REACTIONS (4)
  - Blood glucose decreased [Recovered/Resolved]
  - Renal disorder [Recovered/Resolved]
  - Dehydration [Recovered/Resolved]
  - Cataract [Not Recovered/Not Resolved]
